FAERS Safety Report 6500321-2 (Version None)
Quarter: 2009Q4

REPORT INFORMATION
  Report Type: 
  Country: None (occurrence: None)
  Receive Date: 20091216
  Receipt Date: 20091207
  Transmission Date: 20100525
  Serious: Yes (Other)
  Sender: FDA-Public Use
  Company Number: US-ROCHE-673231

PATIENT
  Age: 51 Year
  Sex: Female

DRUGS (5)
  1. ALL-TRANS-RETINOIC ACID [Suspect]
     Route: 065
  2. DAUNORUBICIN [Concomitant]
     Dosage: DAYS 3-6
  3. CYTARABINE [Concomitant]
     Dosage: DAYS 3-9
  4. CEFEPIME [Concomitant]
     Dosage: ON DAY 1
  5. TOBRAMYCIN [Concomitant]
     Dosage: ON DAY 1

REACTIONS (3)
  - MONONEURITIS [None]
  - MYOSITIS [None]
  - SYNOVITIS [None]
